FAERS Safety Report 14624460 (Version 1)
Quarter: 2018Q1

REPORT INFORMATION
  Report Type: Spontaneous
  Country: US (occurrence: US)
  Receive Date: 20180310
  Receipt Date: 20180310
  Transmission Date: 20180509
  Serious: Yes (Other)
  Sender: FDA-Public Use
  Company Number: None

PATIENT
  Age: 74 Year
  Sex: Male
  Weight: 80.1 kg

DRUGS (10)
  1. VIRAMUNE [Concomitant]
     Active Substance: NEVIRAPINE
  2. DIOVAN [Concomitant]
     Active Substance: VALSARTAN
  3. VITAMIN C [Concomitant]
     Active Substance: ASCORBIC ACID
  4. FOLATE [Concomitant]
     Active Substance: FOLATE SODIUM
  5. EPZICOM [Concomitant]
     Active Substance: ABACAVIR SULFATE\LAMIVUDINE
  6. BYSTOLIC [Concomitant]
     Active Substance: NEBIVOLOL HYDROCHLORIDE
  7. AZITHROMYCIN 250 MG DOSE PACK [Suspect]
     Active Substance: AZITHROMYCIN
     Indication: GROIN INFECTION
     Dosage: ?          QUANTITY:5 TABLET(S);?
     Route: 048
     Dates: start: 20180305, end: 20180309
  8. PRALUENT [Concomitant]
     Active Substance: ALIROCUMAB
  9. VITAMIN D3 [Concomitant]
     Active Substance: CHOLECALCIFEROL
  10. MULTI VIT [Concomitant]

REACTIONS (2)
  - Diarrhoea [None]
  - Memory impairment [None]

NARRATIVE: CASE EVENT DATE: 20180307
